FAERS Safety Report 9957464 (Version 1)
Quarter: 2014Q1

REPORT INFORMATION
  Report Type: Spontaneous
  Country: US (occurrence: US)
  Receive Date: 20140304
  Receipt Date: 20140304
  Transmission Date: 20141002
  Serious: No
  Sender: FDA-Public Use
  Company Number: US-ABBVIE-13P-163-1098953-00

PATIENT
  Age: 57 Year
  Sex: Male
  Weight: 86.26 kg

DRUGS (5)
  1. HUMIRA [Suspect]
     Indication: PSORIATIC ARTHROPATHY
     Dates: start: 201204, end: 20120512
  2. IBUPROFEN [Concomitant]
     Indication: PAIN
  3. PREDNISONE [Concomitant]
     Indication: PAIN
  4. TRIAMTERENE [Concomitant]
     Indication: BLOOD PRESSURE
  5. ALLOPURINOL [Concomitant]
     Indication: GOUT

REACTIONS (5)
  - Skin discolouration [Recovering/Resolving]
  - Skin discolouration [Recovering/Resolving]
  - Rash pruritic [Recovering/Resolving]
  - Rash pruritic [Recovering/Resolving]
  - Tremor [Recovering/Resolving]
